FAERS Safety Report 14816843 (Version 2)
Quarter: 2018Q2

REPORT INFORMATION
  Report Type: Spontaneous
  Country: DE (occurrence: DE)
  Receive Date: 20180426
  Receipt Date: 20180614
  Transmission Date: 20180711
  Serious: Yes (Hospitalization, Other)
  Sender: FDA-Public Use
  Company Number: DE-BRISTOL-MYERS SQUIBB COMPANY-BMS-2018-014830

PATIENT
  Age: 72 Year
  Sex: Female
  Weight: 59.7 kg

DRUGS (1)
  1. OPDIVO [Suspect]
     Active Substance: NIVOLUMAB
     Indication: NON-SMALL CELL LUNG CANCER
     Dosage: 3 MG/KG, UNK
     Route: 042
     Dates: start: 20160416, end: 20171017

REACTIONS (12)
  - Pneumonia [Unknown]
  - Radiation pneumonitis [Recovered/Resolved]
  - Coronary artery disease [Unknown]
  - Lung infiltration [Unknown]
  - Hepatic enzyme increased [Recovering/Resolving]
  - Arteriosclerosis [Unknown]
  - Diverticulitis [Unknown]
  - Neutropenic sepsis [Unknown]
  - Hypothyroidism [Unknown]
  - Systemic inflammatory response syndrome [Unknown]
  - Autoimmune hepatitis [Unknown]
  - Urinary tract infection [Unknown]

NARRATIVE: CASE EVENT DATE: 201705
